FAERS Safety Report 19905160 (Version 15)
Quarter: 2022Q3

REPORT INFORMATION
  Report Type: Report from Study
  Country: CN (occurrence: None)
  Receive Date: 20211001
  Receipt Date: 20220920
  Transmission Date: 20221027
  Serious: Yes (Hospitalization)
  Sender: FDA-Public Use
  Company Number: CN-ROCHE-2924460

PATIENT
  Age: 47 Year
  Sex: Female
  Weight: 56.3 kg

DRUGS (70)
  1. ATEZOLIZUMAB [Suspect]
     Active Substance: ATEZOLIZUMAB
     Indication: Non-small cell lung cancer stage IV
     Dosage: DATE OF MOST RECENT DOSE OF ATEZOLIZUMAB PRIOR TO AE AND SAE ONSET: 07/SEP/2021
     Route: 041
     Dates: start: 20210726
  2. BEVACIZUMAB [Suspect]
     Active Substance: BEVACIZUMAB
     Indication: Non-small cell lung cancer stage IV
     Dosage: ON 07/SEP/2021, SHE RECEIVED MOST RECENT DOSE OF BEVACIZUMAB (800 MG) PRIOR TO ONSET OF SERIOUS ADVE
     Route: 042
     Dates: start: 20210726
  3. CARBOPLATIN [Suspect]
     Active Substance: CARBOPLATIN
     Indication: Non-small cell lung cancer stage IV
     Dosage: ON 07/SEP/2021, SHE RECEIVED MOST RECENT DOSE OF CARBOPLATIN (900 MG) PRIOR TO ONSET OF SERIOUS ADVE
     Route: 042
     Dates: start: 20210726
  4. PEMETREXED [Suspect]
     Active Substance: PEMETREXED
     Indication: Non-small cell lung cancer stage IV
     Dosage: ON 07/SEP/2021, SHE RECEIVED MOST RECENT DOSE OF PEMETREXED (745 MG) PRIOR TO ONSET OF SERIOUS ADVER
     Route: 042
     Dates: start: 20210726
  5. FOLIC ACID [Concomitant]
     Active Substance: FOLIC ACID
     Indication: Pyrexia
     Dates: start: 20210723, end: 20220208
  6. FOLIC ACID [Concomitant]
     Active Substance: FOLIC ACID
     Indication: Chemotherapy
  7. IBUPROFEN [Concomitant]
     Active Substance: IBUPROFEN
     Indication: Pyrexia
     Dates: start: 20210831, end: 20210831
  8. IBUPROFEN [Concomitant]
     Active Substance: IBUPROFEN
     Indication: Analgesic therapy
     Dates: start: 20210831, end: 20210901
  9. IBUPROFEN [Concomitant]
     Active Substance: IBUPROFEN
     Dosage: PREVENT TOOTHACHE
     Dates: start: 20210902, end: 20210904
  10. QING NAO JIANG YA PIAN [Concomitant]
     Dates: start: 20210901, end: 20210901
  11. DEXAMETHASONE ACETATE [Concomitant]
     Active Substance: DEXAMETHASONE ACETATE
     Indication: Chemotherapy
     Route: 048
     Dates: start: 20210929
  12. DEXAMETHASONE ACETATE [Concomitant]
     Active Substance: DEXAMETHASONE ACETATE
     Route: 048
     Dates: start: 20211027, end: 20211027
  13. DEXAMETHASONE ACETATE [Concomitant]
     Active Substance: DEXAMETHASONE ACETATE
     Route: 048
     Dates: start: 20211027, end: 20211029
  14. DEXAMETHASONE ACETATE [Concomitant]
     Active Substance: DEXAMETHASONE ACETATE
     Route: 048
     Dates: start: 20211117, end: 20211117
  15. DEXAMETHASONE ACETATE [Concomitant]
     Active Substance: DEXAMETHASONE ACETATE
     Route: 048
     Dates: start: 20211117, end: 20211119
  16. DEXAMETHASONE ACETATE [Concomitant]
     Active Substance: DEXAMETHASONE ACETATE
     Route: 048
     Dates: start: 20211208, end: 20211208
  17. DEXAMETHASONE ACETATE [Concomitant]
     Active Substance: DEXAMETHASONE ACETATE
     Route: 048
     Dates: start: 20211208, end: 20211210
  18. DEXAMETHASONE ACETATE [Concomitant]
     Active Substance: DEXAMETHASONE ACETATE
     Route: 048
     Dates: start: 20211229, end: 20211229
  19. DEXAMETHASONE ACETATE [Concomitant]
     Active Substance: DEXAMETHASONE ACETATE
     Route: 048
     Dates: start: 20210907, end: 20210909
  20. NADROPARIN CALCIUM [Concomitant]
     Active Substance: NADROPARIN CALCIUM
     Dates: start: 20210908, end: 20210908
  21. METOCLOPRAMIDE DIHYDROCHLORIDE [Concomitant]
     Indication: Prophylaxis
     Dates: start: 20210908, end: 20210908
  22. METOCLOPRAMIDE DIHYDROCHLORIDE [Concomitant]
     Dates: start: 20210930, end: 20210930
  23. METOCLOPRAMIDE DIHYDROCHLORIDE [Concomitant]
     Dates: start: 20211208, end: 20211208
  24. METOCLOPRAMIDE DIHYDROCHLORIDE [Concomitant]
     Dates: start: 20211229, end: 20211229
  25. METOCLOPRAMIDE DIHYDROCHLORIDE [Concomitant]
     Dates: start: 20211028, end: 20211028
  26. TROPISETRON HYDROCHLORIDE [Concomitant]
     Active Substance: TROPISETRON HYDROCHLORIDE
     Indication: Prophylaxis
     Dates: start: 20210908, end: 20210908
  27. TROPISETRON HYDROCHLORIDE [Concomitant]
     Active Substance: TROPISETRON HYDROCHLORIDE
     Dates: start: 20210930, end: 20210930
  28. TROPISETRON HYDROCHLORIDE [Concomitant]
     Active Substance: TROPISETRON HYDROCHLORIDE
     Dates: start: 20211117, end: 20211117
  29. TROPISETRON HYDROCHLORIDE [Concomitant]
     Active Substance: TROPISETRON HYDROCHLORIDE
     Dates: start: 20211208, end: 20211208
  30. TROPISETRON HYDROCHLORIDE [Concomitant]
     Active Substance: TROPISETRON HYDROCHLORIDE
     Dates: start: 20211229, end: 20211229
  31. TROPISETRON HYDROCHLORIDE [Concomitant]
     Active Substance: TROPISETRON HYDROCHLORIDE
     Dates: start: 20211028, end: 20211028
  32. DIPHENHYDRAMINE HYDROCHLORIDE [Concomitant]
     Active Substance: DIPHENHYDRAMINE HYDROCHLORIDE
     Indication: Prophylaxis
     Dates: start: 20210908, end: 20210908
  33. DIPHENHYDRAMINE HYDROCHLORIDE [Concomitant]
     Active Substance: DIPHENHYDRAMINE HYDROCHLORIDE
     Dates: start: 20210930, end: 20210930
  34. DIPHENHYDRAMINE HYDROCHLORIDE [Concomitant]
     Active Substance: DIPHENHYDRAMINE HYDROCHLORIDE
     Dates: start: 20211117, end: 20211117
  35. DIPHENHYDRAMINE HYDROCHLORIDE [Concomitant]
     Active Substance: DIPHENHYDRAMINE HYDROCHLORIDE
     Dates: start: 20211208, end: 20211208
  36. DIPHENHYDRAMINE HYDROCHLORIDE [Concomitant]
     Active Substance: DIPHENHYDRAMINE HYDROCHLORIDE
     Dates: start: 20211229, end: 20211229
  37. DIPHENHYDRAMINE HYDROCHLORIDE [Concomitant]
     Active Substance: DIPHENHYDRAMINE HYDROCHLORIDE
     Dates: start: 20211028, end: 20211028
  38. OMEPRAZOLE SODIUM [Concomitant]
     Active Substance: OMEPRAZOLE SODIUM
     Indication: Prophylaxis
     Dates: start: 20210908, end: 20210908
  39. OMEPRAZOLE SODIUM [Concomitant]
     Active Substance: OMEPRAZOLE SODIUM
     Dates: start: 20210930, end: 20210930
  40. OMEPRAZOLE SODIUM [Concomitant]
     Active Substance: OMEPRAZOLE SODIUM
     Dates: start: 20211022, end: 20211022
  41. OMEPRAZOLE SODIUM [Concomitant]
     Active Substance: OMEPRAZOLE SODIUM
     Dates: start: 20211229, end: 20211229
  42. FOSAPREPITANT DIMEGLUMINE [Concomitant]
     Active Substance: FOSAPREPITANT DIMEGLUMINE
     Indication: Prophylaxis
     Dates: start: 20210908, end: 20210908
  43. FOSAPREPITANT DIMEGLUMINE [Concomitant]
     Active Substance: FOSAPREPITANT DIMEGLUMINE
     Dates: start: 20210930, end: 20210930
  44. THROMBOPOIETIN [Concomitant]
     Active Substance: THROMBOPOIETIN
     Dates: start: 20210927, end: 20210930
  45. THROMBOPOIETIN [Concomitant]
     Active Substance: THROMBOPOIETIN
     Dates: start: 20211021, end: 20211028
  46. FAMOTIDINE [Concomitant]
     Active Substance: FAMOTIDINE
     Dates: start: 20211117, end: 20211117
  47. RECLOMIDE [Concomitant]
     Dates: start: 20211117, end: 20211117
  48. ENOXAPARIN SODIUM [Concomitant]
     Active Substance: ENOXAPARIN SODIUM
     Dates: start: 20211208, end: 20211208
  49. HUMAN RED BLOOD CELL [Concomitant]
     Active Substance: HUMAN RED BLOOD CELL
     Dosage: AB SUSPENSION
     Dates: start: 20210928, end: 20210928
  50. VITAMIN B12 [Concomitant]
     Active Substance: CYANOCOBALAMIN
     Dates: start: 20211028, end: 20211028
  51. AMBROXOL HYDROCHLORIDE [Concomitant]
     Active Substance: AMBROXOL HYDROCHLORIDE
     Indication: Cough
     Dates: start: 20210930, end: 20211005
  52. AMBROXOL HYDROCHLORIDE [Concomitant]
     Active Substance: AMBROXOL HYDROCHLORIDE
     Dates: start: 20210928, end: 20210930
  53. DOXOFYLLINE [Concomitant]
     Active Substance: DOXOFYLLINE
     Indication: Cough
     Dates: start: 20210930, end: 20211005
  54. DOXOFYLLINE [Concomitant]
     Active Substance: DOXOFYLLINE
     Dates: start: 20210928, end: 20210930
  55. TERBUTALINE SULFATE [Concomitant]
     Active Substance: TERBUTALINE SULFATE
     Indication: Cough
     Dates: start: 20210930, end: 20211005
  56. TERBUTALINE SULFATE [Concomitant]
     Active Substance: TERBUTALINE SULFATE
     Dates: start: 20210928, end: 20210930
  57. BUDESONIDE [Concomitant]
     Active Substance: BUDESONIDE
     Indication: Cough
     Dates: start: 20210930, end: 20211005
  58. BUDESONIDE [Concomitant]
     Active Substance: BUDESONIDE
     Dates: start: 20210928, end: 20210930
  59. FLUIMUCIL [Concomitant]
     Active Substance: ACETYLCYSTEINE
     Indication: Cough
     Dates: start: 20210930, end: 20211005
  60. FLUIMUCIL [Concomitant]
     Active Substance: ACETYLCYSTEINE
     Dates: start: 20210928, end: 20210930
  61. COMPOUND CODEINE PHOSPHATE [Concomitant]
     Indication: Cough
     Dates: start: 20210930, end: 20210930
  62. VITAMIN C [Concomitant]
     Active Substance: ASCORBIC ACID
     Dates: start: 20211016, end: 20211018
  63. RANITIDINE HYDROCHLORIDE [Concomitant]
     Active Substance: RANITIDINE HYDROCHLORIDE
     Dates: start: 20211016, end: 20211018
  64. INOSINE [Concomitant]
     Active Substance: INOSINE
     Dates: start: 20211016, end: 20211018
  65. LEUCOGEN (CHINA) [Concomitant]
     Dates: start: 20211016, end: 20211018
  66. OPRELVEKIN [Concomitant]
     Active Substance: OPRELVEKIN
     Dates: start: 20211016, end: 20211018
  67. CEFTAZIDIME [Concomitant]
     Active Substance: CEFTAZIDIME
     Dates: start: 20211016, end: 20211016
  68. VITAMIN B6 [Concomitant]
     Active Substance: PYRIDOXINE HYDROCHLORIDE
     Dates: start: 20211016, end: 20211018
  69. AMINOPHENAZONE;BARBITAL [Concomitant]
     Indication: Pyrexia
     Dates: start: 20211016, end: 20211016
  70. DEXAMETHASONE SODIUM PHOSPHATE [Concomitant]
     Active Substance: DEXAMETHASONE SODIUM PHOSPHATE
     Indication: Pyrexia
     Route: 030
     Dates: start: 20211016, end: 20211016

REACTIONS (1)
  - Myelosuppression [Recovered/Resolved]

NARRATIVE: CASE EVENT DATE: 20210927
